FAERS Safety Report 20676563 (Version 2)
Quarter: 2022Q2

REPORT INFORMATION
  Report Type: Report from Study
  Country: CA (occurrence: CA)
  Receive Date: 20220405
  Receipt Date: 20220524
  Transmission Date: 20220721
  Serious: Yes (Hospitalization, Other)
  Sender: FDA-Public Use
  Company Number: CA-002147023-NVSC2019CA006201

PATIENT
  Age: 43 Year
  Sex: Female

DRUGS (2)
  1. AIMOVIG [Suspect]
     Active Substance: ERENUMAB-AOOE
     Indication: Migraine
     Dosage: UNK
     Route: 065
     Dates: start: 20190930
  2. TOPIRAMATE [Concomitant]
     Active Substance: TOPIRAMATE
     Indication: Product used for unknown indication
     Dosage: UNK (FOR 4 MONTHS)
     Route: 065
     Dates: start: 2018

REACTIONS (26)
  - Head injury [Unknown]
  - Brain injury [Unknown]
  - Endometriosis [Not Recovered/Not Resolved]
  - Condition aggravated [Unknown]
  - Abdominal pain [Unknown]
  - Feeling abnormal [Unknown]
  - Nasopharyngitis [Unknown]
  - Adverse drug reaction [Unknown]
  - Nausea [Recovering/Resolving]
  - Hyperhidrosis [Unknown]
  - Dizziness [Unknown]
  - Asthenia [Unknown]
  - Asthma [Unknown]
  - Injection site discomfort [Unknown]
  - Therapeutic product effect incomplete [Unknown]
  - Cognitive disorder [Unknown]
  - Movement disorder [Recovering/Resolving]
  - Visual impairment [Unknown]
  - Grip strength decreased [Unknown]
  - Motor dysfunction [Unknown]
  - Muscular weakness [Unknown]
  - Amnesia [Unknown]
  - Neck injury [Unknown]
  - Headache [Unknown]
  - Migraine [Not Recovered/Not Resolved]
  - Vomiting [Unknown]
